FAERS Safety Report 8296604-9 (Version None)
Quarter: 2012Q2

REPORT INFORMATION
  Report Type: 
  Country: None (occurrence: None)
  Receive Date: 20120418
  Receipt Date: 20120418
  Transmission Date: 20120825
  Serious: Yes (Hospitalization)
  Sender: FDA-Public Use
  Company Number: None

PATIENT
  Age: 90 Year
  Sex: Female
  Weight: 61 kg

DRUGS (8)
  1. NITROGLYCERIN [Concomitant]
     Route: 060
  2. LISINOPRIL [Concomitant]
     Route: 048
  3. INSULIN GLARGINE [Suspect]
     Indication: DIABETES MELLITUS
     Dosage: 20 UNITS
     Route: 058
  4. METOPROLOL TARTRATE [Concomitant]
     Route: 048
  5. SIMVASTATIN [Concomitant]
     Route: 048
  6. GLIMEPIRIDE [Concomitant]
     Indication: DIABETES MELLITUS
     Dosage: 2 MG
     Route: 048
  7. CLOPIDOGREL [Concomitant]
     Route: 048
  8. NABUMETONE [Concomitant]
     Route: 048

REACTIONS (2)
  - SYNCOPE [None]
  - HYPOGLYCAEMIA [None]
